FAERS Safety Report 4775020-8 (Version None)
Quarter: 2005Q3

REPORT INFORMATION
  Report Type: 
  Country: None (occurrence: None)
  Receive Date: 20050920
  Receipt Date: 20050902
  Transmission Date: 20060218
  Serious: Yes (Other)
  Sender: FDA-Public Use
  Company Number: DSA_27031_2005

PATIENT
  Age: 70 Year
  Sex: Male

DRUGS (8)
  1. RENIVACE [Suspect]
     Dosage: 5 MG QD PO
     Route: 048
     Dates: start: 20050320
  2. GASTER D [Suspect]
     Dosage: 20 MG QD PO
     Route: 048
     Dates: start: 20050320
  3. LIPITOR [Suspect]
     Dosage: 10 MG QD PO
     Route: 048
     Dates: start: 20050320
  4. PLETAL [Suspect]
     Dosage: 5 MG QD PO
     Route: 048
     Dates: start: 20050320
  5. BLOPRESS [Suspect]
     Dosage: 2 MG QD PO
     Route: 048
     Dates: start: 20050320
  6. ULGUT [Suspect]
     Dosage: DF PO
     Route: 048
     Dates: start: 20050320
  7. HUMALOG [Suspect]
     Dosage: 3 IU SC
     Route: 058
     Dates: start: 20050320
  8. UNSPECIFIED THERAPY [Suspect]
     Dosage: DF
     Dates: start: 20050729

REACTIONS (3)
  - FALL [None]
  - HYPOAESTHESIA [None]
  - TREATMENT NONCOMPLIANCE [None]
